FAERS Safety Report 9548053 (Version 1)
Quarter: 2013Q3

REPORT INFORMATION
  Report Type: Spontaneous
  Country: US (occurrence: US)
  Receive Date: 20130924
  Receipt Date: 20130924
  Transmission Date: 20140515
  Serious: No
  Sender: FDA-Public Use
  Company Number: US-PURDUE-USA-2011-0072886

PATIENT
  Sex: Male
  Weight: 107 kg

DRUGS (1)
  1. MORPHINE SULFATE EXTENDED-RELEASE TABLETS (WATSON 74-862) [Suspect]
     Indication: ARTHRALGIA
     Dosage: 30 MG, TID
     Route: 048
     Dates: start: 201105

REACTIONS (1)
  - Constipation [Not Recovered/Not Resolved]
